FAERS Safety Report 9860616 (Version 1)
Quarter: 2014Q1

REPORT INFORMATION
  Report Type: Spontaneous
  Country: US (occurrence: US)
  Receive Date: 20140202
  Receipt Date: 20140202
  Transmission Date: 20141002
  Serious: No
  Sender: FDA-Public Use
  Company Number: US-ALLERGAN-1300104US

PATIENT
  Age: 51 Year
  Sex: Female

DRUGS (6)
  1. BOTOX COSMETIC [Suspect]
     Indication: ROSACEA
     Dosage: 15 TO 20 UNITS, SINGLE
     Route: 030
     Dates: start: 20121121, end: 20121121
  2. BOTOX COSMETIC [Suspect]
     Indication: SKIN WRINKLING
     Dosage: 30 TO 35 UNITS, SINGLE
     Route: 030
     Dates: start: 20121121, end: 20121121
  3. BOTOX COSMETIC [Suspect]
     Indication: SKIN WRINKLING
  4. BOTOX COSMETIC [Suspect]
     Indication: SKIN WRINKLING
  5. BOTOX COSMETIC [Suspect]
     Indication: PERIORBITAL OEDEMA
  6. DIAPHRAGM [Concomitant]
     Indication: CONTRACEPTION
     Dosage: UNK

REACTIONS (4)
  - Sensory disturbance [Recovering/Resolving]
  - Facial paresis [Recovering/Resolving]
  - Facial paresis [Recovering/Resolving]
  - Off label use [Unknown]
